FAERS Safety Report 21316280 (Version 3)
Quarter: 2022Q4

REPORT INFORMATION
  Report Type: Spontaneous
  Country: US (occurrence: US)
  Receive Date: 20220910
  Receipt Date: 20221123
  Transmission Date: 20230113
  Serious: Yes (Death, Hospitalization, Other)
  Sender: FDA-Public Use
  Company Number: US-CHIESI-2022CHF04586

PATIENT
  Age: 40 Year
  Sex: Female
  Weight: 61 kg

DRUGS (18)
  1. FERRIPROX [Suspect]
     Active Substance: DEFERIPRONE
     Indication: Haemochromatosis
     Dosage: 2000 MILLIGRAM, BID
     Route: 048
     Dates: start: 20210406
  2. FERRIPROX [Suspect]
     Active Substance: DEFERIPRONE
     Indication: Transfusion
  3. FERRIPROX [Suspect]
     Active Substance: DEFERIPRONE
     Indication: Sickle cell disease
  4. DESFERAL [Concomitant]
     Active Substance: DEFEROXAMINE MESYLATE
     Indication: Renal impairment
     Dosage: UNK
     Dates: end: 2022
  5. DESFERAL [Concomitant]
     Active Substance: DEFEROXAMINE MESYLATE
     Dosage: UNK, BID
     Dates: start: 20220406
  6. FOLIC ACID [Concomitant]
     Active Substance: FOLIC ACID
     Indication: Product used for unknown indication
     Dosage: 1 MILLIGRAM, QD
     Dates: start: 20220725, end: 2022
  7. GABAPENTIN [Concomitant]
     Active Substance: GABAPENTIN
     Indication: Product used for unknown indication
     Dosage: UNK, TID
  8. HYDROCODONE [Concomitant]
     Active Substance: HYDROCODONE
     Indication: Product used for unknown indication
     Dosage: UNK
  9. HYDROXYUREA [Concomitant]
     Active Substance: HYDROXYUREA
     Indication: Product used for unknown indication
     Dosage: 500 MILLIGRAM, QD
     Route: 048
  10. OXBRYTA [Concomitant]
     Active Substance: VOXELOTOR
     Indication: Product used for unknown indication
     Dosage: 1500 MILLIGRAM, QD
     Route: 048
     Dates: start: 2022, end: 2022
  11. MILAX [Concomitant]
     Indication: Product used for unknown indication
     Dosage: 17 MILLIGRAM, QD
     Route: 048
     Dates: start: 20220725, end: 2022
  12. BENADRYL [Concomitant]
     Active Substance: DIPHENHYDRAMINE HYDROCHLORIDE
     Indication: Product used for unknown indication
     Dosage: 25 MILLIGRAM, PRN
  13. DILAUDID [Concomitant]
     Active Substance: HYDROMORPHONE HYDROCHLORIDE
     Indication: Pain
     Dosage: 4 MILLIGRAM, PRN
     Route: 042
  14. EXJADE [Concomitant]
     Active Substance: DEFERASIROX
     Indication: Product used for unknown indication
     Dosage: 500 MILLIGRAM, QD
  15. DESYREL [Concomitant]
     Active Substance: TRAZODONE HYDROCHLORIDE
     Indication: Sleep disorder
     Dosage: 25 MILLIGRAM, TOTAL
     Route: 048
     Dates: start: 2022, end: 2022
  16. CHOLECALCIFEROL [Concomitant]
     Active Substance: CHOLECALCIFEROL
     Indication: Product used for unknown indication
     Dosage: 1 DOSAGE FORM, QD
     Route: 048
     Dates: start: 20220124, end: 2022
  17. OXYCODONE [Concomitant]
     Active Substance: OXYCODONE
     Indication: Product used for unknown indication
     Dosage: 1 DOSAGE FORM, Q4H
     Dates: start: 20220716, end: 2022
  18. RENVELA [Concomitant]
     Active Substance: SEVELAMER CARBONATE
     Indication: Product used for unknown indication
     Dosage: 1 DOSAGE FORM, TID
     Route: 048
     Dates: start: 20220717, end: 2022

REACTIONS (21)
  - Infection [Fatal]
  - Chronic kidney disease [Fatal]
  - Acute respiratory failure [Fatal]
  - COVID-19 pneumonia [Fatal]
  - Acute hepatic failure [Fatal]
  - Epilepsy with myoclonic-atonic seizures [Fatal]
  - Pulmonary oedema [Fatal]
  - Urine output decreased [Fatal]
  - Atrioventricular block second degree [Fatal]
  - Distributive shock [Fatal]
  - Cardiac arrest [Fatal]
  - Frequent bowel movements [Fatal]
  - Hypotension [Fatal]
  - Tricuspid valve disease [Recovered/Resolved]
  - Negative thoughts [Not Recovered/Not Resolved]
  - Bradycardia [Unknown]
  - Swollen tongue [Unknown]
  - Supraventricular tachycardia [Recovered/Resolved]
  - Metabolic acidosis [Unknown]
  - Diarrhoea [Recovered/Resolved]
  - Off label use [Recovered/Resolved]

NARRATIVE: CASE EVENT DATE: 20210406
